FAERS Safety Report 10091398 (Version 2)
Quarter: 2014Q2

REPORT INFORMATION
  Report Type: Report from Study
  Country: US (occurrence: US)
  Receive Date: 20140421
  Receipt Date: 20140508
  Transmission Date: 20141212
  Serious: Yes (Other)
  Sender: FDA-Public Use
  Company Number: US-GILEAD-2014-0100116

PATIENT
  Sex: Female

DRUGS (2)
  1. RANOLAZINE [Suspect]
     Indication: ANGINA PECTORIS
     Dosage: 1000 MG, UNK
     Route: 048
  2. RANOLAZINE [Suspect]
     Dosage: 500 MG, BID
     Route: 048

REACTIONS (4)
  - Choking [Unknown]
  - Dysphagia [Unknown]
  - Wrong technique in drug usage process [Unknown]
  - Retching [Not Recovered/Not Resolved]
